FAERS Safety Report 4723398-3 (Version None)
Quarter: 2005Q3

REPORT INFORMATION
  Report Type: 
  Country: None (occurrence: None)
  Receive Date: 20050721
  Receipt Date: 20050721
  Transmission Date: 20060218
  Serious: Yes (Disabling, Other)
  Sender: FDA-Public Use
  Company Number: None

PATIENT
  Age: 28 Year
  Sex: Male
  Weight: 65.7716 kg

DRUGS (2)
  1. LARIAM [Suspect]
     Indication: MALARIA PROPHYLAXIS
     Dosage: 1 WEEKLY ORAL
     Route: 048
     Dates: start: 20030601, end: 20040301
  2. VERAPAMIL [Concomitant]

REACTIONS (4)
  - DRUG DEPENDENCE [None]
  - EYE PAIN [None]
  - HEADACHE [None]
  - MOOD SWINGS [None]
